FAERS Safety Report 8438776-9 (Version None)
Quarter: 2012Q2

REPORT INFORMATION
  Report Type: 
  Country: None (occurrence: None)
  Receive Date: 20120615
  Receipt Date: 20120604
  Transmission Date: 20120825
  Serious: Yes (Hospitalization)
  Sender: FDA-Public Use
  Company Number: FR-VERTEX PHARMACEUTICALS INC.-000000000000000869

PATIENT
  Sex: Female
  Weight: 79 kg

DRUGS (13)
  1. COPEGUS [Concomitant]
     Dates: start: 20120101, end: 20120306
  2. PEGASYS [Concomitant]
     Indication: HEPATITIS C
     Dates: start: 20111213, end: 20120306
  3. ATARAX [Concomitant]
     Indication: ANXIETY
  4. COPEGUS [Concomitant]
     Indication: HEPATITIS C
     Dates: start: 20111213
  5. LEVOTHYROXINE SODIUM [Concomitant]
     Indication: HYPOTHYROIDISM
  6. LASIX [Concomitant]
     Indication: OEDEMA
  7. STILNOX [Concomitant]
     Indication: INSOMNIA
  8. PAROXETINE [Concomitant]
     Indication: DEPRESSION
  9. POTASSIUM CHLORIDE [Concomitant]
     Indication: HYPOKALAEMIA
  10. NEXIUM [Concomitant]
     Indication: ILL-DEFINED DISORDER
  11. INCIVO [Suspect]
     Indication: HEPATITIS C
     Dosage: DOSAGE FORM: TABLET
     Route: 048
     Dates: start: 20111213, end: 20120306
  12. PROPRANOLOL [Concomitant]
     Indication: VARICES OESOPHAGEAL
  13. SYMBICORT [Concomitant]
     Indication: ASTHMA

REACTIONS (3)
  - ANAEMIA [None]
  - ASCITES [None]
  - OEDEMA [None]
